FAERS Safety Report 18399187 (Version 3)
Quarter: 2020Q4

REPORT INFORMATION
  Report Type: Spontaneous
  Country: US (occurrence: US)
  Receive Date: 20201019
  Receipt Date: 20201204
  Transmission Date: 20210114
  Serious: No
  Sender: FDA-Public Use
  Company Number: US-ASTRAZENECA-2020SF32160

PATIENT
  Age: 605 Month
  Sex: Male

DRUGS (2)
  1. BYDUREON BCISE [Suspect]
     Active Substance: EXENATIDE
     Indication: DIABETES MELLITUS
     Route: 065
  2. BYDUREON BCISE [Suspect]
     Active Substance: EXENATIDE
     Indication: DIABETES MELLITUS
     Dosage: DOSE AND FREQUENCY UNKNOWN
     Route: 065

REACTIONS (6)
  - Mass [Unknown]
  - Incorrect dose administered by device [Unknown]
  - Renal disorder [Unknown]
  - Device leakage [Unknown]
  - Intentional device misuse [Unknown]
  - Visual impairment [Unknown]

NARRATIVE: CASE EVENT DATE: 202009
